FAERS Safety Report 24538843 (Version 1)
Quarter: 2024Q4

REPORT INFORMATION
  Report Type: Spontaneous
  Country: GB (occurrence: GB)
  Receive Date: 20241023
  Receipt Date: 20241023
  Transmission Date: 20250115
  Serious: Yes (Hospitalization, Other)
  Sender: AMNEAL
  Company Number: GB-AMNEAL PHARMACEUTICALS-2024-AMRX-03738

PATIENT
  Age: 58 Year

DRUGS (11)
  1. ALYMSYS [Suspect]
     Active Substance: BEVACIZUMAB-MALY
     Indication: Product used for unknown indication
     Dosage: UNK
     Route: 065
  2. PACLITAXEL [Suspect]
     Active Substance: PACLITAXEL
     Indication: Product used for unknown indication
     Dosage: UNK
     Route: 065
  3. CARBOPLATIN [Suspect]
     Active Substance: CARBOPLATIN
     Indication: Product used for unknown indication
     Dosage: UNK
     Route: 065
  4. ANASTROZOLE [Concomitant]
     Active Substance: ANASTROZOLE
     Indication: Product used for unknown indication
     Dosage: 1 MG TABLETS ONE TO BE TAKEN EACH DAY
     Route: 065
  5. MORPHINE [Concomitant]
     Active Substance: MORPHINE
     Indication: Pain
     Dosage: 10 MG / 5 ML ORAL SOLUTION 12.5 ML ( 25 MG) TO BE TAKEN EVERY THREE HOURS
     Route: 065
  6. MORPHINE [Concomitant]
     Active Substance: MORPHINE
     Dosage: 60 MG TABLETS ONE TO BE TAKEN EVERY 12 HOURS. TDD 70 MG BD
     Route: 065
  7. MORPHINE [Concomitant]
     Active Substance: MORPHINE
     Dosage: 10 MG TABLETS ONE TO BE TAKEN EVERY 12 HOURS
     Route: 065
  8. DOCUSATE [Concomitant]
     Active Substance: DOCUSATE
     Indication: Product used for unknown indication
     Dosage: 100 MG CAPSULES ONE TO BE TAKEN TWICE A DAY
     Route: 065
  9. SENNA LEAF [Concomitant]
     Active Substance: SENNA LEAF
     Indication: Product used for unknown indication
     Dosage: 7.5 MG TABLETS TWO TO BE TAKEN AT NIGHT
     Route: 065
  10. LANSOPRAZOLE [Concomitant]
     Active Substance: LANSOPRAZOLE
     Indication: Product used for unknown indication
     Dosage: 30 MG GASTRO RESISTANT CAPSULES ONE TO BE TAKEN AT NIGHT
     Route: 065
  11. PREGABALIN [Concomitant]
     Active Substance: PREGABALIN
     Indication: Product used for unknown indication
     Dosage: 75 MILLIGRAM, 2 /DAY
     Route: 065

REACTIONS (1)
  - Colitis [Unknown]
